FAERS Safety Report 5664003-1 (Version None)
Quarter: 2008Q1

REPORT INFORMATION
  Report Type: 
  Country: None (occurrence: None)
  Receive Date: 20080314
  Receipt Date: 20080304
  Transmission Date: 20080703
  Serious: Yes (Other)
  Sender: FDA-Public Use
  Company Number: US-BAYER-200810143NA

PATIENT
  Age: 56 Year
  Sex: Male

DRUGS (4)
  1. AVELOX [Suspect]
     Indication: BRONCHITIS
     Dosage: TOTAL DAILY DOSE: 400 MG  UNIT DOSE: 400 MG
     Route: 048
     Dates: start: 20071201
  2. AVELOX [Suspect]
     Dates: start: 20060419
  3. BENICAR [Concomitant]
  4. AVANDAMET [Concomitant]

REACTIONS (2)
  - ANAPHYLACTIC REACTION [None]
  - OBSTRUCTIVE AIRWAYS DISORDER [None]
